FAERS Safety Report 10235775 (Version 1)
Quarter: 2014Q2

REPORT INFORMATION
  Report Type: Spontaneous
  Country: US (occurrence: US)
  Receive Date: 20140613
  Receipt Date: 20140613
  Transmission Date: 20141212
  Serious: No
  Sender: FDA-Public Use
  Company Number: US-PFIZER INC-2014161297

PATIENT
  Age: 51 Year
  Sex: Female

DRUGS (5)
  1. DILANTIN [Suspect]
     Dosage: UNK
  2. ERYTHROMYCIN [Suspect]
     Dosage: UNK
  3. TEGRETOL [Suspect]
     Dosage: UNK
  4. IMITREX [Suspect]
     Dosage: UNK
  5. PHENOBARBITAL [Suspect]
     Dosage: UNK

REACTIONS (1)
  - Drug hypersensitivity [Unknown]
